FAERS Safety Report 7237442-5 (Version None)
Quarter: 2011Q1

REPORT INFORMATION
  Report Type: 
  Country: None (occurrence: None)
  Receive Date: 20110121
  Receipt Date: 20110119
  Transmission Date: 20110831
  Serious: Yes (Death, Hospitalization)
  Sender: FDA-Public Use
  Company Number: NL-B.I. PHARMACEUTICALS,INC./RIDGEFIELD-2010-DE-05458DE

PATIENT
  Sex: Male
  Weight: 76 kg

DRUGS (15)
  1. ACETYLSAL CARD [Concomitant]
     Indication: TRANSIENT ISCHAEMIC ATTACK
     Dosage: 80 MG
     Route: 048
     Dates: start: 19900101
  2. ALFUZOSINE [Concomitant]
     Dosage: 10 MG
  3. TRAMADOL [Concomitant]
     Dosage: 200 MG
  4. NADROPARINE [Concomitant]
     Dosage: 1.6 ML
  5. MACROGOL [Concomitant]
     Dosage: 1DD2
  6. FLUTICASONE PROPIONATE [Concomitant]
     Dosage: 2DD1
  7. SALBUTAMOL/IPATROPIUM [Concomitant]
     Dosage: 10 ML
  8. MORFIN [Concomitant]
  9. AUGMENTIN '125' [Concomitant]
     Dosage: 1000/200MG
     Route: 042
  10. PARACETAMOL [Concomitant]
     Dosage: 4000 MG
  11. DABIGATRAN [Suspect]
     Indication: DEEP VEIN THROMBOSIS
     Dosage: 300 MG
     Route: 048
     Dates: start: 20100921, end: 20100929
  12. CIPROFLOXACIN HCL [Concomitant]
     Dosage: 1000 MG
  13. BLIND (WARFARIN) [Suspect]
     Dosage: 4 OR 5 MG EVERY OTHER DAY
     Route: 048
     Dates: start: 20100914, end: 20100929
  14. ESOMEPRAZOLE MAGNESIUM [Concomitant]
     Dosage: 20 MG
  15. PREDNISOLONE [Concomitant]
     Dosage: 30 MG

REACTIONS (5)
  - EMBOLISM ARTERIAL [None]
  - DEEP VEIN THROMBOSIS [None]
  - ACUTE RESPIRATORY FAILURE [None]
  - PULMONARY EMBOLISM [None]
  - ASTHMA [None]
